FAERS Safety Report 6894578-6 (Version None)
Quarter: 2010Q3

REPORT INFORMATION
  Report Type: 
  Country: None (occurrence: None)
  Receive Date: 20100802
  Receipt Date: 20100720
  Transmission Date: 20110219
  Serious: Yes (Hospitalization)
  Sender: FDA-Public Use
  Company Number: PHHY2010JP42975

PATIENT
  Age: 38 Year
  Sex: Male

DRUGS (4)
  1. VOLTAREN [Suspect]
     Dosage: 50 MG
     Route: 054
     Dates: start: 20100614, end: 20100626
  2. VOLTAREN [Suspect]
     Dosage: UNK
     Dates: start: 20100614
  3. BUPRENORPHINE HCL [Concomitant]
     Indication: ABDOMINAL PAIN
     Dosage: 0.2 MG DAILY
     Route: 054
  4. TS 1 [Concomitant]
     Dosage: UNK
     Route: 048
     Dates: start: 20100206, end: 20100608

REACTIONS (5)
  - INTESTINAL OBSTRUCTION [None]
  - INTESTINAL OPERATION [None]
  - METASTASES TO GASTROINTESTINAL TRACT [None]
  - OVERDOSE [None]
  - PROCTALGIA [None]
